FAERS Safety Report 6540815-7 (Version None)
Quarter: 2010Q1

REPORT INFORMATION
  Report Type: 
  Country: None (occurrence: None)
  Receive Date: 20100118
  Receipt Date: 20100108
  Transmission Date: 20100710
  Serious: Yes (Hospitalization, Other)
  Sender: FDA-Public Use
  Company Number: US-JNJFOC-20100103656

PATIENT
  Sex: Female
  Weight: 72.58 kg

DRUGS (7)
  1. DURAGESIC-100 [Suspect]
     Indication: PAIN
     Dosage: NDC: 50458 03305
     Route: 062
  2. DURAGESIC-100 [Suspect]
     Route: 062
  3. TOPAMAX [Concomitant]
     Indication: PAIN
     Route: 048
  4. FLEXERIL [Concomitant]
     Indication: PAIN
     Route: 048
  5. AMBIEN [Concomitant]
     Indication: SLEEP DISORDER
     Route: 048
  6. KEPPRA [Concomitant]
     Indication: PAIN
     Route: 048
  7. PROZAC [Concomitant]
     Indication: ANXIETY
     Route: 048

REACTIONS (3)
  - DRUG INEFFECTIVE [None]
  - FIBROMYALGIA [None]
  - ROAD TRAFFIC ACCIDENT [None]
